FAERS Safety Report 6405217-2 (Version None)
Quarter: 2009Q4

REPORT INFORMATION
  Report Type: 
  Country: None (occurrence: None)
  Receive Date: 20091019
  Receipt Date: 20091008
  Transmission Date: 20100525
  Serious: Yes (Other)
  Sender: FDA-Public Use
  Company Number: PHHY2009MX41322

PATIENT
  Sex: Male

DRUGS (6)
  1. STALEVO 100 [Suspect]
     Indication: PARKINSON'S DISEASE
     Dosage: 3 TABLETS (200MG/50MG/12.5MG) DAILY
     Dates: start: 20071001
  2. AKINETON [Concomitant]
  3. FINASTERIDE [Concomitant]
  4. SECOTEX [Concomitant]
  5. OMEPRAZOLE [Concomitant]
     Indication: PROSTATIC DISORDER
  6. ANTIBIOTICS [Concomitant]
     Indication: CYSTITIS

REACTIONS (5)
  - ABASIA [None]
  - DRUG INEFFECTIVE [None]
  - HYDROCELE [None]
  - ORCHITIS NONINFECTIVE [None]
  - SPEECH DISORDER [None]
